FAERS Safety Report 5672007-8 (Version None)
Quarter: 2008Q1

REPORT INFORMATION
  Report Type: 
  Country: None (occurrence: None)
  Receive Date: 20080314
  Receipt Date: 20080227
  Transmission Date: 20080703
  Serious: Yes (Hospitalization, Other)
  Sender: FDA-Public Use
  Company Number: 2008JP000724

PATIENT
  Age: 57 Year
  Sex: Male

DRUGS (5)
  1. PROGRAF [Suspect]
     Indication: RENAL TRANSPLANT
  2. MYCOPHENOLATE MOFETIL [Concomitant]
  3. PREDNISOLONE [Concomitant]
  4. GUSPERIMUS HYDROCHLORIDE (GUSPERIMUS HYDROCHLORIDE) [Concomitant]
  5. RITUXIMAB (RITUXIMAB) [Concomitant]

REACTIONS (4)
  - ANASTOMOTIC ULCER HAEMORRHAGE [None]
  - BRONCHOPULMONARY ASPERGILLOSIS [None]
  - CYTOMEGALOVIRUS INFECTION [None]
  - MELAENA [None]
